FAERS Safety Report 7794837-9 (Version None)
Quarter: 2011Q4

REPORT INFORMATION
  Report Type: 
  Country: None (occurrence: None)
  Receive Date: 20111004
  Receipt Date: 20110921
  Transmission Date: 20120403
  Serious: Yes (Hospitalization, Other)
  Sender: FDA-Public Use
  Company Number: PHFR2011GB02507

PATIENT
  Sex: Female

DRUGS (8)
  1. DIAZEPAM [Suspect]
     Dates: start: 20110409
  2. CLOZAPINE [Suspect]
     Indication: SCHIZOPHRENIA
     Dosage: UNK UKN, UNK
     Route: 048
     Dates: start: 20100106, end: 20110601
  3. METFORMIN HCL [Suspect]
     Dates: start: 20110409
  4. DIAZEPAM [Suspect]
     Dates: start: 20110409
  5. FLUOXETINE [Concomitant]
     Indication: SCHIZOAFFECTIVE DISORDER
     Dosage: 20 MG/DAY
     Route: 048
  6. TRIHEXYPHENIDYL HCL [Concomitant]
     Dosage: 10 MG/DAY
     Route: 048
  7. LANSOPRAZOLE [Concomitant]
     Indication: DYSPEPSIA
     Dosage: 30 MG/DAY
     Route: 048
  8. VALPROIC ACID [Concomitant]
     Indication: SCHIZOAFFECTIVE DISORDER
     Dosage: 1000 MG/DAY

REACTIONS (4)
  - OVERDOSE [None]
  - SUICIDE ATTEMPT [None]
  - WEIGHT INCREASED [None]
  - AFFECTIVE DISORDER [None]
